FAERS Safety Report 13472712 (Version 1)
Quarter: 2017Q2

REPORT INFORMATION
  Report Type: Spontaneous
  Country: US (occurrence: US)
  Receive Date: 20170424
  Receipt Date: 20170424
  Transmission Date: 20170830
  Serious: Yes (Other)
  Sender: FDA-Public Use
  Company Number: US-ROCHE-1923107

PATIENT
  Age: 50 Year
  Sex: Male

DRUGS (14)
  1. TAZOBACTAM [Concomitant]
     Active Substance: TAZOBACTAM
     Indication: SEPSIS
  2. WARFARIN [Concomitant]
     Active Substance: WARFARIN
     Indication: PULMONARY EMBOLISM
     Route: 065
  3. MEROPENEM. [Concomitant]
     Active Substance: MEROPENEM
     Route: 065
  4. HEPARIN [Concomitant]
     Active Substance: HEPARIN SODIUM
     Indication: PULMONARY EMBOLISM
     Route: 065
  5. PIPERACILLIN [Concomitant]
     Active Substance: PIPERACILLIN
     Indication: SEPSIS
  6. SULFAMETHOXAZOLE/TRIMETHOPRIM [Suspect]
     Active Substance: SULFAMETHOXAZOLE\TRIMETHOPRIM
     Indication: PNEUMOCYSTIS JIROVECII PNEUMONIA
     Route: 065
  7. LEVOFLOXACIN. [Concomitant]
     Active Substance: LEVOFLOXACIN
     Indication: PNEUMONIA
  8. VANCOMYCIN [Concomitant]
     Active Substance: VANCOMYCIN
     Indication: PNEUMONIA
  9. VORICONAZOLE. [Concomitant]
     Active Substance: VORICONAZOLE
     Indication: FUNGAL INFECTION
     Route: 065
  10. COCAINE [Concomitant]
     Active Substance: COCAINE
     Route: 065
  11. RITUXIMAB [Suspect]
     Active Substance: RITUXIMAB
     Indication: GRANULOMATOSIS WITH POLYANGIITIS
     Route: 065
  12. PREDNISONE. [Suspect]
     Active Substance: PREDNISONE
     Indication: PSEUDOVASCULITIS
     Route: 065
  13. PREDNISONE. [Suspect]
     Active Substance: PREDNISONE
     Indication: GRANULOMATOSIS WITH POLYANGIITIS
     Route: 065
  14. CLINDAMYCIN. [Concomitant]
     Active Substance: CLINDAMYCIN
     Indication: PNEUMONIA ASPIRATION
     Route: 065

REACTIONS (3)
  - Sepsis [Unknown]
  - Acute kidney injury [Recovering/Resolving]
  - Blood creatinine increased [Recovering/Resolving]
